FAERS Safety Report 13441000 (Version 4)
Quarter: 2017Q3

REPORT INFORMATION
  Report Type: Report from Study
  Country: CO (occurrence: CO)
  Receive Date: 20170413
  Receipt Date: 20170823
  Transmission Date: 20171127
  Serious: Yes (Other)
  Sender: FDA-Public Use
  Company Number: CO-REGENERON PHARMACEUTICALS, INC.-2017-14272

PATIENT

DRUGS (1)
  1. EYLEA [Suspect]
     Active Substance: AFLIBERCEPT
     Indication: RETINAL VEIN OCCLUSION
     Dosage: 1 DF, Q1MON
     Dates: start: 20140104

REACTIONS (3)
  - Intraocular lens implant [Recovering/Resolving]
  - Cataract operation [Recovered/Resolved]
  - Intraocular lens implant [Unknown]

NARRATIVE: CASE EVENT DATE: 2016
